FAERS Safety Report 11052780 (Version 1)
Quarter: 2015Q2

REPORT INFORMATION
  Report Type: Spontaneous
  Country: US (occurrence: US)
  Receive Date: 20150421
  Receipt Date: 20150421
  Transmission Date: 20150821
  Serious: Yes (Hospitalization, Other)
  Sender: FDA-Public Use
  Company Number: US-MYLANLABS-2014M1006980

PATIENT
  Age: 37 Year
  Sex: Female
  Weight: 61.22 kg

DRUGS (3)
  1. DAILY VITAMINS [Concomitant]
     Dosage: UNK, QD
     Route: 048
  2. NITROFURANTOIN (MONOHYDRATE/MACROCRYSTALS) [Suspect]
     Active Substance: NITROFURANTOIN\NITROFURANTOIN MONOHYDRATE
     Dosage: 100 MG, BID
     Route: 048
     Dates: start: 20140930, end: 20140930
  3. NITROFURANTOIN (MONOHYDRATE/MACROCRYSTALS) [Suspect]
     Active Substance: NITROFURANTOIN\NITROFURANTOIN MONOHYDRATE
     Indication: URINARY TRACT INFECTION
     Dosage: 100 MG, BID
     Route: 048
     Dates: start: 20140916, end: 20140923

REACTIONS (1)
  - Pneumonitis [Recovered/Resolved]

NARRATIVE: CASE EVENT DATE: 20140930
